FAERS Safety Report 5337225-7 (Version None)
Quarter: 2007Q2

REPORT INFORMATION
  Report Type: 
  Country: None (occurrence: None)
  Receive Date: 20070529
  Receipt Date: 20070524
  Transmission Date: 20071010
  Serious: Yes (Hospitalization)
  Sender: FDA-Public Use
  Company Number: A0652885A

PATIENT
  Sex: Female

DRUGS (3)
  1. AVANDARYL [Suspect]
     Dosage: 1TAB PER DAY
     Route: 048
     Dates: end: 20070523
  2. LANTUS [Concomitant]
  3. LEVOXYL [Concomitant]

REACTIONS (2)
  - ARRHYTHMIA [None]
  - CHEST DISCOMFORT [None]
